FAERS Safety Report 6031995-0 (Version None)
Quarter: 2009Q1

REPORT INFORMATION
  Report Type: 
  Country: None (occurrence: None)
  Receive Date: 20090107
  Receipt Date: 20081217
  Transmission Date: 20090719
  Serious: Yes (Other)
  Sender: FDA-Public Use
  Company Number: 2009000036

PATIENT
  Age: 89 Year
  Sex: Male
  Weight: 52.7 kg

DRUGS (8)
  1. MACUGEN [Suspect]
     Indication: MACULAR DEGENERATION
     Dosage: (0.3 MG), INTRA-VITREAL
     Dates: start: 20081128
  2. TELMISARTAN [Concomitant]
  3. FUROSEMIDE (FUROSEMIDE) [Concomitant]
  4. ATORVASTATIN CALCIUM [Concomitant]
  5. CHLORMADINONE (CHLORMADINONE) [Concomitant]
  6. TAMSULOSIN HCL [Concomitant]
  7. VOGLIBOSE (VOGLIBOSE) [Concomitant]
  8. MITIGLINIDE [Concomitant]

REACTIONS (3)
  - ISCHAEMIA [None]
  - OCULAR HYPERTENSION [None]
  - VISUAL IMPAIRMENT [None]
